FAERS Safety Report 10881677 (Version 1)
Quarter: 2015Q1

REPORT INFORMATION
  Report Type: Spontaneous
  Country: US (occurrence: None)
  Receive Date: 20150226
  Receipt Date: 20150226
  Transmission Date: 20150721
  Serious: Yes (Other)
  Sender: FDA-Public Use
  Company Number: None

PATIENT
  Age: 47 Year
  Sex: Female

DRUGS (1)
  1. BOSULIF [Suspect]
     Active Substance: BOSUTINIB MONOHYDRATE
     Route: 048
     Dates: start: 20150220, end: 20150224

REACTIONS (5)
  - Vomiting [None]
  - Abdominal pain [None]
  - Headache [None]
  - Rash [None]
  - Nausea [None]

NARRATIVE: CASE EVENT DATE: 20150224
